FAERS Safety Report 5927229-5 (Version None)
Quarter: 2008Q4

REPORT INFORMATION
  Report Type: 
  Country: None (occurrence: None)
  Receive Date: 20081022
  Receipt Date: 20081007
  Transmission Date: 20090506
  Serious: Yes (Hospitalization)
  Sender: FDA-Public Use
  Company Number: AT-GENENTECH-269911

PATIENT
  Sex: Male

DRUGS (2)
  1. AVASTIN [Suspect]
     Indication: RENAL CANCER
     Dosage: 10 MG/KG, UNK
     Route: 042
     Dates: start: 20080612, end: 20080925
  2. INTERFERON ALFA [Concomitant]
     Indication: DRUG USE FOR UNKNOWN INDICATION

REACTIONS (3)
  - DYSPNOEA [None]
  - HYPERTENSION [None]
  - TACHYCARDIA [None]
